FAERS Safety Report 9474034 (Version 1)
Quarter: 2013Q3

REPORT INFORMATION
  Report Type: Spontaneous
  Country: US (occurrence: None)
  Receive Date: 20130820
  Receipt Date: 20130820
  Transmission Date: 20140515
  Serious: Yes (Hospitalization, Other)
  Sender: FDA-Public Use
  Company Number: 2013US002112

PATIENT
  Age: 82 Year
  Sex: Female

DRUGS (1)
  1. ICLUSIG [Suspect]
     Indication: CHRONIC MYELOID LEUKAEMIA
     Route: 048
     Dates: start: 201306, end: 20130712

REACTIONS (4)
  - Aortic valve stenosis [None]
  - Transient ischaemic attack [None]
  - Hypertension [None]
  - Fatigue [None]
